FAERS Safety Report 17416137 (Version 1)
Quarter: 2020Q1

REPORT INFORMATION
  Report Type: Spontaneous
  Country: ES (occurrence: ES)
  Receive Date: 20200213
  Receipt Date: 20200213
  Transmission Date: 20200409
  Serious: Yes (Other)
  Sender: FDA-Public Use
  Company Number: ES-JNJFOC-20200209017

PATIENT
  Age: 55 Year
  Sex: Female

DRUGS (1)
  1. STELARA [Suspect]
     Active Substance: USTEKINUMAB
     Indication: PSORIASIS
     Dosage: 45MG CADA 3 MESES
     Route: 058
     Dates: start: 20150519

REACTIONS (1)
  - Intraductal proliferative breast lesion [Recovering/Resolving]

NARRATIVE: CASE EVENT DATE: 20191122
